FAERS Safety Report 24444483 (Version 2)
Quarter: 2024Q4

REPORT INFORMATION
  Report Type: Report from Study
  Country: US (occurrence: US)
  Receive Date: 20241016
  Receipt Date: 20241017
  Transmission Date: 20250115
  Serious: No
  Sender: ROCHE
  Company Number: US-ROCHE-2711909

PATIENT
  Age: 40 Year
  Sex: Female

DRUGS (3)
  1. RITUXAN [Suspect]
     Active Substance: RITUXIMAB
     Indication: Polymyositis
     Dosage: INFUSE 1000 MG DAY 1 AND DAY 15 EVERY 6 MONTHS
     Route: 041
     Dates: end: 20230412
  2. RITUXAN [Suspect]
     Active Substance: RITUXIMAB
     Indication: Polyarthritis
  3. RITUXAN [Suspect]
     Active Substance: RITUXIMAB
     Indication: Connective tissue disorder

REACTIONS (2)
  - Off label use [Unknown]
  - No adverse event [Unknown]
